FAERS Safety Report 12527863 (Version 1)
Quarter: 2016Q3

REPORT INFORMATION
  Report Type: Spontaneous
  Country: US (occurrence: US)
  Receive Date: 20160705
  Receipt Date: 20160705
  Transmission Date: 20161109
  Serious: Yes (Hospitalization, Other)
  Sender: FDA-Public Use
  Company Number: US-BAYER-2016-124778

PATIENT
  Age: 41 Year
  Sex: Male

DRUGS (1)
  1. BETASERON [Suspect]
     Active Substance: INTERFERON BETA-1B
     Indication: MULTIPLE SCLEROSIS
     Dosage: 0.3 MG, QOD
     Route: 058
     Dates: start: 1996

REACTIONS (6)
  - Incorrect route of drug administration [None]
  - Throat irritation [None]
  - Hypoaesthesia [None]
  - Coronary artery occlusion [None]
  - Influenza like illness [None]
  - Oropharyngeal swelling [None]

NARRATIVE: CASE EVENT DATE: 2006
